FAERS Safety Report 5974274-X (Version None)
Quarter: 2008Q4

REPORT INFORMATION
  Report Type: 
  Country: None (occurrence: None)
  Receive Date: 20081128
  Receipt Date: 20081121
  Transmission Date: 20090506
  Serious: Yes (Hospitalization)
  Sender: FDA-Public Use
  Company Number: US025085

PATIENT
  Sex: Female

DRUGS (1)
  1. FENTORA [Suspect]
     Dosage: 800 UG ONCE ORAL
     Route: 048

REACTIONS (1)
  - ACCIDENTAL DRUG INTAKE BY CHILD [None]
